FAERS Safety Report 8221280-0 (Version None)
Quarter: 2012Q1

REPORT INFORMATION
  Report Type: 
  Country: None (occurrence: None)
  Receive Date: 20120320
  Receipt Date: 20120314
  Transmission Date: 20120608
  Serious: Yes (Death, Hospitalization, Other)
  Sender: FDA-Public Use
  Company Number: PHHY2011FR22561

PATIENT
  Sex: Male
  Weight: 58 kg

DRUGS (4)
  1. IMATINIB MESYLATE [Suspect]
     Indication: CHRONIC MYELOID LEUKAEMIA
     Dosage: UNK
     Route: 048
     Dates: start: 20081110, end: 20100531
  2. DEXAMETHASONE [Concomitant]
     Dosage: UNK
  3. ELDISINE [Concomitant]
     Dosage: UNK
  4. PROGRAF [Suspect]
     Dosage: 1.5 MG, BID

REACTIONS (11)
  - COMA [None]
  - RENAL FAILURE ACUTE [None]
  - WEIGHT DECREASED [None]
  - ASTHENIA [None]
  - GENERAL PHYSICAL HEALTH DETERIORATION [None]
  - DYSPNOEA [None]
  - DEATH [None]
  - HYPONATRAEMIA [None]
  - ACUTE LYMPHOCYTIC LEUKAEMIA RECURRENT [None]
  - CONVULSION [None]
  - TOXICITY TO VARIOUS AGENTS [None]
